FAERS Safety Report 10024252 (Version 1)
Quarter: 2014Q1

REPORT INFORMATION
  Report Type: Spontaneous
  Country: US (occurrence: None)
  Receive Date: 20140129
  Receipt Date: 20140129
  Transmission Date: 20141002
  Serious: No
  Sender: FDA-Public Use
  Company Number: 54973 AE # 1525

PATIENT
  Age: 1 Year
  Sex: Male

DRUGS (1)
  1. HYLANDS BABY TEETHING TABLETS [Suspect]
     Indication: TEETHING
     Dosage: 2 TABS HS X 1 DOSE

REACTIONS (1)
  - Convulsion [None]
